FAERS Safety Report 22631654 (Version 1)
Quarter: 2023Q2

REPORT INFORMATION
  Report Type: Report from Study
  Country: EG (occurrence: EG)
  Receive Date: 20230623
  Receipt Date: 20230623
  Transmission Date: 20230721
  Serious: Yes (Life-Threatening, Hospitalization)
  Sender: FDA-Public Use
  Company Number: EG-002147023-NVSC2023EG139682

PATIENT
  Age: 26 Year
  Sex: Female

DRUGS (7)
  1. HYRIMOZ [Suspect]
     Active Substance: ADALIMUMAB-ADAZ
     Indication: Ankylosing spondylitis
     Dosage: 40 MG, EVERY 15 DAYS
     Route: 065
     Dates: start: 20221102, end: 20230105
  2. HYRIMOZ [Suspect]
     Active Substance: ADALIMUMAB-ADAZ
     Dosage: 40 MG, EVERY 15 DAYS
     Route: 065
     Dates: start: 20230201, end: 20230220
  3. HYRIMOZ [Suspect]
     Active Substance: ADALIMUMAB-ADAZ
     Dosage: 40 MG, EVERY 15 DAYS
     Route: 065
     Dates: start: 202304, end: 20230404
  4. NEXIUM [Concomitant]
     Active Substance: ESOMEPRAZOLE MAGNESIUM
     Indication: Gastric ulcer
     Dosage: 2 DOSAGE FORM, QD
     Route: 065
     Dates: start: 202207
  5. REBAMIPIDE [Concomitant]
     Active Substance: REBAMIPIDE
     Indication: Gastric ulcer
     Dosage: 1 DOSAGE FORM, TID
     Route: 065
     Dates: start: 202207
  6. REBAMIPIDE [Concomitant]
     Active Substance: REBAMIPIDE
     Indication: Ankylosing spondylitis
  7. COLOSALAZINE EC [Concomitant]
     Indication: Product used for unknown indication
     Dosage: 4 DOSAGE FORM, QD
     Route: 065
     Dates: start: 202204

REACTIONS (2)
  - Gastric ulcer haemorrhage [Recovering/Resolving]
  - Haemoglobin decreased [Recovering/Resolving]

NARRATIVE: CASE EVENT DATE: 20221201
